FAERS Safety Report 21329167 (Version 6)
Quarter: 2023Q2

REPORT INFORMATION
  Report Type: Report from Study
  Country: US (occurrence: US)
  Receive Date: 20220913
  Receipt Date: 20230520
  Transmission Date: 20230722
  Serious: No
  Sender: FDA-Public Use
  Company Number: US-NOVARTISTESTPH-NVSC2022US205667

PATIENT
  Age: 48 Year
  Sex: Female

DRUGS (4)
  1. KESIMPTA [Suspect]
     Active Substance: OFATUMUMAB
     Indication: Relapsing multiple sclerosis
     Dosage: 20 MG, OTHER (1 DOSE A WEEK FOR THE 1ST 3 WEEKS, THEN SKIP A WEEK, THE 1 DOSE PER MONTH)
     Route: 058
     Dates: start: 20220804
  2. KESIMPTA [Suspect]
     Active Substance: OFATUMUMAB
     Indication: Clinically isolated syndrome
     Dosage: 20 MG, QMO
     Route: 058
     Dates: end: 20230130
  3. KESIMPTA [Suspect]
     Active Substance: OFATUMUMAB
     Indication: Relapsing-remitting multiple sclerosis
     Dosage: UNK
     Route: 065
     Dates: start: 202302
  4. KESIMPTA [Suspect]
     Active Substance: OFATUMUMAB
     Indication: Secondary progressive multiple sclerosis

REACTIONS (2)
  - Inappropriate schedule of product administration [Unknown]
  - Drug ineffective [Unknown]

NARRATIVE: CASE EVENT DATE: 20220804
